FAERS Safety Report 4995082-2 (Version None)
Quarter: 2006Q2

REPORT INFORMATION
  Report Type: 
  Country: None (occurrence: None)
  Receive Date: 20060503
  Receipt Date: 20060424
  Transmission Date: 20061013
  Serious: Yes (Other)
  Sender: FDA-Public Use
  Company Number: 2006043298

PATIENT
  Age: 63 Year
  Sex: Female
  Weight: 76.2043 kg

DRUGS (7)
  1. CELEBREX [Suspect]
     Indication: BACK PAIN
     Dosage: 200 MG (200 MG, 1 IN 1 D)
     Dates: start: 20050101
  2. SYNTHROID [Concomitant]
  3. ELAVIL [Concomitant]
  4. ALBUTEROL [Concomitant]
  5. ADVAIR DISKUS 100/50 [Concomitant]
  6. FLONASE [Concomitant]
  7. BENAZEPRIL HYDROCHLORIDE [Concomitant]

REACTIONS (2)
  - BREAST CANCER FEMALE [None]
  - LYMPHOID TISSUE OPERATION [None]
